FAERS Safety Report 17087109 (Version 1)
Quarter: 2019Q4

REPORT INFORMATION
  Report Type: Spontaneous
  Country: GB (occurrence: GB)
  Receive Date: 20191128
  Receipt Date: 20191128
  Transmission Date: 20200122
  Serious: Yes (Other)
  Sender: FDA-Public Use
  Company Number: GB-TEVA-2019-GB-1142253

PATIENT
  Age: 82 Year
  Sex: Female
  Weight: 55 kg

DRUGS (25)
  1. SIMVASTATIN. [Concomitant]
     Active Substance: SIMVASTATIN
     Dosage: 1 DF
     Dates: start: 20180912
  2. NOVORAPID [Concomitant]
     Active Substance: INSULIN ASPART
     Dosage: USE AS DIRECTED
     Dates: start: 20191003
  3. RANITIDINE. [Concomitant]
     Active Substance: RANITIDINE
     Dosage: 2 DF
     Dates: start: 20180912
  4. SPIRONOLACTONE. [Concomitant]
     Active Substance: SPIRONOLACTONE
     Dosage: HALF A TABLET DINNER TIME
     Dates: start: 20180912
  5. SYMBICORT [Concomitant]
     Active Substance: BUDESONIDE\FORMOTEROL FUMARATE DIHYDRATE
     Dosage: PUFF, 2 DF
     Route: 055
     Dates: start: 20180912, end: 20191015
  6. ADCAL [Concomitant]
     Dosage: 2 DF
     Dates: start: 20180912, end: 20190724
  7. METRONIDAZOLE. [Concomitant]
     Active Substance: METRONIDAZOLE
     Dosage: 2 DF
     Dates: start: 20190903, end: 20190910
  8. CLARITHROMYCIN. [Suspect]
     Active Substance: CLARITHROMYCIN
     Dosage: 500 MG
     Dates: start: 20191022
  9. NICORANDIL [Concomitant]
     Active Substance: NICORANDIL
     Dosage: 2 DF
     Dates: start: 20180912
  10. CLARITHROMYCIN. [Concomitant]
     Active Substance: CLARITHROMYCIN
     Dosage: 2 DF
     Dates: start: 20191015, end: 20191022
  11. GLYCERYL TRINITRATE [Concomitant]
     Active Substance: NITROGLYCERIN
     Dosage: PUFF, 1 DF
     Dates: start: 20180912
  12. ALLOPURINOL. [Concomitant]
     Active Substance: ALLOPURINOL
     Dosage: 1 DF
     Dates: start: 20180912
  13. SALBUTAMOL [Concomitant]
     Active Substance: ALBUTEROL
     Dosage: 1-2 PUFFS PRN. COPD REVIEWIN JULY13.
     Dates: start: 20180912
  14. CIPROFLOXACIN. [Concomitant]
     Active Substance: CIPROFLOXACIN
     Dosage: 2 DF
     Dates: start: 20191022
  15. LACTULOSE. [Concomitant]
     Active Substance: LACTULOSE
     Dosage: 20 ML
     Dates: start: 20191011
  16. VENTOLIN [Concomitant]
     Active Substance: ALBUTEROL SULFATE
     Dosage: 2 DF
     Route: 055
     Dates: start: 20190904, end: 20191002
  17. REFRESH CELLUVISC [Concomitant]
     Active Substance: CARBOXYMETHYLCELLULOSE SODIUM
     Dosage: 1-2 DROPS AS DIRECTED BY OPTHAL
     Dates: start: 20180912
  18. MONOMIL XL [Concomitant]
     Active Substance: ISOSORBIDE MONONITRATE
     Dosage: 1 DF
     Dates: start: 20180912
  19. ISOPHANE INSULIN [Concomitant]
     Active Substance: INSULIN NOS
     Dosage: USE AS DIRECTED
     Dates: start: 20180912
  20. VIAZEM XL [Concomitant]
     Active Substance: DILTIAZEM HYDROCHLORIDE
     Dosage: 1 DF
     Dates: start: 20180912
  21. MEBEVERINE HYDROCHLORIDE [Concomitant]
     Active Substance: MEBEVERINE HYDROCHLORIDE
     Dosage: 3 DF
     Dates: start: 20180912
  22. CLOPIDOGREL [Concomitant]
     Active Substance: CLOPIDOGREL BISULFATE
     Dosage: 1 DF
     Dates: start: 20180912
  23. IPRATROPIUM BROMIDE. [Concomitant]
     Active Substance: IPRATROPIUM BROMIDE
     Dosage: PUFF THREE TO FOUR TIMES A DAY, 1 DF
     Dates: start: 20180912
  24. FUROSEMIDE. [Concomitant]
     Active Substance: FUROSEMIDE
     Dosage: TAKE 2 TABLETS IN THE MORNING AND ONE AT LUNCH ...
     Dates: start: 20180912
  25. FOSTAIR [Concomitant]
     Active Substance: BECLOMETHASONE\FORMOTEROL
     Dosage: PUFFS, 4 DF
     Dates: start: 20190904

REACTIONS (2)
  - Somnolence [Recovered/Resolved]
  - Palpitations [Unknown]

NARRATIVE: CASE EVENT DATE: 20191022
